FAERS Safety Report 10225645 (Version 2)
Quarter: 2014Q2

REPORT INFORMATION
  Report Type: Spontaneous
  Country: US (occurrence: US)
  Receive Date: 20140609
  Receipt Date: 20140609
  Transmission Date: 20141212
  Serious: Yes (Other)
  Sender: FDA-Public Use
  Company Number: US-ASTELLAS-2013US011594

PATIENT
  Age: 62 Year
  Sex: Male

DRUGS (3)
  1. PROGRAF [Suspect]
     Indication: LIVER TRANSPLANT
     Dosage: 2 MG IN MORINING AND 3 MG IN EVENING
     Route: 048
     Dates: start: 201212
  2. PROGRAF [Interacting]
     Route: 048
  3. PROGRAF [Interacting]
     Dosage: 2 MG IN MORINING AND 3 MG IN EVENING
     Route: 048

REACTIONS (19)
  - Transient ischaemic attack [Unknown]
  - Transplant rejection [Unknown]
  - Nervousness [Unknown]
  - Visual impairment [Unknown]
  - Dyspnoea [Unknown]
  - Tendonitis [Unknown]
  - Anxiety [Unknown]
  - Depression [Unknown]
  - Agitation [Unknown]
  - Confusional state [Unknown]
  - Diarrhoea [Unknown]
  - Pollakiuria [Unknown]
  - Headache [Unknown]
  - Rash [Unknown]
  - Pruritus [Unknown]
  - Asthenia [Unknown]
  - Fatigue [Unknown]
  - Somnolence [Unknown]
  - Insomnia [Unknown]
